FAERS Safety Report 22609843 (Version 2)
Quarter: 2024Q3

REPORT INFORMATION
  Report Type: Spontaneous
  Country: GB (occurrence: GB)
  Receive Date: 20230616
  Receipt Date: 20240903
  Transmission Date: 20241016
  Serious: Yes (Life-Threatening)
  Sender: RANBAXY
  Company Number: GB-MHRA-TPP31612675C9871282YC1685432401202

PATIENT
  Age: 36 Year
  Sex: Female
  Weight: 91 kg

DRUGS (5)
  1. CODEINE [Suspect]
     Active Substance: CODEINE
     Indication: Ill-defined disorder
     Dosage: UNK
     Route: 065
     Dates: start: 20230524
  2. CLONAZEPAM [Concomitant]
     Active Substance: CLONAZEPAM
     Indication: Ill-defined disorder
     Dosage: TAKE HALF A TABLET OR ONE TABLET DAILY
     Route: 065
     Dates: start: 20230201
  3. FLUCLOXACILLIN [Concomitant]
     Active Substance: FLUCLOXACILLIN
     Indication: Ill-defined disorder
     Dosage: TAKE ONE 4 TIMES/DAY
     Route: 065
     Dates: start: 20230524
  4. FLUOXETINE [Concomitant]
     Active Substance: FLUOXETINE HYDROCHLORIDE
     Indication: Ill-defined disorder
     Dosage: TAKE ONE DAILY.
     Route: 065
     Dates: start: 20230317
  5. LAMOTRIGINE [Concomitant]
     Active Substance: LAMOTRIGINE
     Indication: Ill-defined disorder
     Dosage: TAKE TWO TABLETS A DAY IN THE MORNING THEREAFTER
     Route: 065
     Dates: start: 20211207

REACTIONS (1)
  - Pharyngeal swelling [Unknown]

NARRATIVE: CASE EVENT DATE: 20230530
